FAERS Safety Report 8571334-4 (Version None)
Quarter: 2012Q3

REPORT INFORMATION
  Report Type: 
  Country: None (occurrence: None)
  Receive Date: 20120806
  Receipt Date: 20120725
  Transmission Date: 20120928
  Serious: Yes (Hospitalization, Other)
  Sender: FDA-Public Use
  Company Number: US-JNJFOC-20120714850

PATIENT
  Age: 8 Year
  Sex: Female
  Weight: 19 kg

DRUGS (3)
  1. FENTANYL CITRATE [Suspect]
     Indication: PAIN MANAGEMENT
     Route: 062
  2. MORPHINE SULFATE [Suspect]
     Indication: PAIN MANAGEMENT
     Route: 042
  3. MORPHINE SULFATE [Suspect]
     Dosage: 96 MG PER DAY (AVERAGE DOSE)
     Route: 042

REACTIONS (3)
  - NAUSEA [None]
  - GASTROINTESTINAL DISORDER [None]
  - CONSTIPATION [None]
